FAERS Safety Report 14747090 (Version 2)
Quarter: 2018Q2

REPORT INFORMATION
  Report Type: Spontaneous
  Country: US (occurrence: US)
  Receive Date: 20180411
  Receipt Date: 20180601
  Transmission Date: 20180711
  Serious: No
  Sender: FDA-Public Use
  Company Number: US-ASTRAZENECA-2018SE42455

PATIENT
  Sex: Female
  Weight: 81.2 kg

DRUGS (1)
  1. SYMBICORT [Suspect]
     Active Substance: BUDESONIDE\FORMOTEROL FUMARATE DIHYDRATE
     Dosage: 160/45MCG TWO TIMES A DAY
     Route: 055

REACTIONS (4)
  - Intentional product misuse [Unknown]
  - Chest discomfort [Unknown]
  - Wrong technique in product usage process [Unknown]
  - Device malfunction [Unknown]
